FAERS Safety Report 9536345 (Version 1)
Quarter: 2013Q2

REPORT INFORMATION
  Report Type: Spontaneous
  Country: US (occurrence: None)
  Receive Date: 20130507
  Receipt Date: 20130507
  Transmission Date: 20140414
  Serious: No
  Sender: FDA-Public Use
  Company Number: PHEH2013US001126

PATIENT
  Sex: Female

DRUGS (3)
  1. AFINITOR (RAD) [Suspect]
     Indication: RENAL CELL CARCINOMA
     Route: 048
  2. ZOMETA (ZOLEDRONIC ACID) [Concomitant]
  3. NARCOTINE (NOSCAPINE) [Concomitant]

REACTIONS (2)
  - Dehydration [None]
  - Blood creatinine increased [None]
